FAERS Safety Report 8599137-5 (Version None)
Quarter: 2012Q3

REPORT INFORMATION
  Report Type: 
  Country: None (occurrence: None)
  Receive Date: 20120816
  Receipt Date: 19950503
  Transmission Date: 20120928
  Serious: Yes (Other)
  Sender: FDA-Public Use
  Company Number: US-ROCHE-1101493

PATIENT
  Sex: Male

DRUGS (7)
  1. HEPARIN [Concomitant]
     Dosage: 5000 BOLUS
  2. MYLANTA DOUBLE STRENGTH [Concomitant]
  3. NITROSTAT [Concomitant]
     Route: 060
  4. NITROSTAT [Concomitant]
     Dosage: 50 MG/DSW
     Route: 042
  5. MORPHINE [Concomitant]
  6. ASPIRIN [Concomitant]
  7. ACTIVASE [Suspect]
     Indication: CORONARY ARTERY INSUFFICIENCY

REACTIONS (3)
  - ELECTROCARDIOGRAM ST SEGMENT ELEVATION [None]
  - SINUS BRADYCARDIA [None]
  - DRY MOUTH [None]
